FAERS Safety Report 6901918-8 (Version None)
Quarter: 2010Q3

REPORT INFORMATION
  Report Type: 
  Country: None (occurrence: None)
  Receive Date: 20100803
  Receipt Date: 20080325
  Transmission Date: 20110219
  Serious: No
  Sender: FDA-Public Use
  Company Number: US-PFIZER INC-2008013028

PATIENT
  Sex: Female
  Weight: 92.5 kg

DRUGS (6)
  1. LYRICA [Suspect]
     Indication: FIBROMYALGIA
     Dates: start: 20080201
  2. TYLENOL [Concomitant]
  3. VICODIN [Concomitant]
  4. PAXIL [Concomitant]
  5. PROTONIX [Concomitant]
  6. GABAPENTIN [Concomitant]

REACTIONS (5)
  - DIZZINESS [None]
  - INCREASED APPETITE [None]
  - PAIN [None]
  - SOMNOLENCE [None]
  - WEIGHT INCREASED [None]
